FAERS Safety Report 10567790 (Version 1)
Quarter: 2014Q4

REPORT INFORMATION
  Report Type: Spontaneous
  Country: US (occurrence: None)
  Receive Date: 20141105
  Receipt Date: 20141105
  Transmission Date: 20150529
  Serious: No
  Sender: FDA-Public Use
  Company Number: None

PATIENT
  Age: 14 Month
  Sex: Female

DRUGS (1)
  1. BABY TEETHING [Suspect]
     Active Substance: ARABICA COFFEE BEAN\ATROPA BELLADONNA\CALCIUM PHOSPHATE\CHAMOMILE
     Dates: start: 20141030, end: 20141031

REACTIONS (2)
  - Petit mal epilepsy [None]
  - Constipation [None]

NARRATIVE: CASE EVENT DATE: 20141031
